FAERS Safety Report 14918345 (Version 1)
Quarter: 2018Q2

REPORT INFORMATION
  Report Type: Spontaneous
  Country: US (occurrence: US)
  Receive Date: 20180502
  Receipt Date: 20180502
  Transmission Date: 20180711
  Serious: Yes (Hospitalization)
  Sender: FDA-Public Use
  Company Number: None

PATIENT
  Age: 46 Year
  Sex: Female

DRUGS (1)
  1. OPSUMIT [Suspect]
     Active Substance: MACITENTAN
     Indication: PULMONARY ARTERIAL HYPERTENSION
     Route: 048
     Dates: start: 20180301

REACTIONS (6)
  - Abdominal pain [None]
  - Respiratory failure [None]
  - Acute kidney injury [None]
  - Cholangitis [None]
  - Septic shock [None]
  - Bacterial infection [None]

NARRATIVE: CASE EVENT DATE: 20180408
